FAERS Safety Report 10144051 (Version 1)
Quarter: 2014Q2

REPORT INFORMATION
  Report Type: Spontaneous
  Country: BR (occurrence: BR)
  Receive Date: 20140430
  Receipt Date: 20140430
  Transmission Date: 20141212
  Serious: Yes (Other)
  Sender: FDA-Public Use
  Company Number: BR-PFIZER INC-2014116129

PATIENT
  Age: 68 Year
  Sex: Female
  Weight: 65 kg

DRUGS (4)
  1. FRONTAL [Suspect]
     Dosage: UNK
     Route: 048
     Dates: start: 1994
  2. SELOZOK [Concomitant]
     Indication: PALPITATIONS
     Dosage: UNK
     Dates: start: 1994
  3. ORGANONEURO OPTICO [Concomitant]
     Indication: EYE DISORDER
     Dosage: UNK
     Dates: start: 201312
  4. PROSSO [Concomitant]
     Indication: BONE DISORDER
     Dosage: UNK

REACTIONS (1)
  - Urinary tract infection [Recovered/Resolved]
